FAERS Safety Report 16403994 (Version 9)
Quarter: 2019Q3

REPORT INFORMATION
  Report Type: Spontaneous
  Country: US (occurrence: US)
  Receive Date: 20190607
  Receipt Date: 20190710
  Transmission Date: 20191004
  Serious: Yes (Death)
  Sender: FDA-Public Use
  Company Number: US-CELGENEUS-USA-20190602224

PATIENT
  Age: 74 Year
  Sex: Male

DRUGS (1)
  1. REVLIMID [Suspect]
     Active Substance: LENALIDOMIDE
     Indication: PLASMA CELL MYELOMA
     Dosage: 15 MILLIGRAM
     Route: 048
     Dates: start: 20171227, end: 20190604

REACTIONS (4)
  - Infection [Unknown]
  - Plasma cell myeloma [Fatal]
  - Death [Fatal]
  - Renal failure [Fatal]

NARRATIVE: CASE EVENT DATE: 20190604
